FAERS Safety Report 6178044-1 (Version None)
Quarter: 2009Q2

REPORT INFORMATION
  Report Type: 
  Country: None (occurrence: None)
  Receive Date: 20090504
  Receipt Date: 20090126
  Transmission Date: 20091009
  Serious: No
  Sender: FDA-Public Use
  Company Number: US-ALEXION-A200900080

PATIENT
  Sex: Female

DRUGS (4)
  1. SOLIRIS [Suspect]
     Indication: PAROXYSMAL NOCTURNAL HAEMOGLOBINURIA
     Dosage: 600 MG, QW
     Route: 042
     Dates: start: 20081016, end: 20081106
  2. SOLIRIS [Suspect]
     Dosage: 900 MG, Q2W
     Route: 042
     Dates: start: 20081113
  3. SOLIRIS [Suspect]
     Dosage: 900 MG, DELAYS IN DOSING
     Route: 042
  4. SOLIRIS [Suspect]
     Dosage: 600 MG, QWK, REINDUCTION
     Route: 042
     Dates: start: 20090128

REACTIONS (2)
  - DRUG INEFFECTIVE [None]
  - HAEMOLYSIS [None]
